FAERS Safety Report 7912530-6 (Version None)
Quarter: 2011Q4

REPORT INFORMATION
  Report Type: 
  Country: None (occurrence: None)
  Receive Date: 20111114
  Receipt Date: 20111108
  Transmission Date: 20120403
  Serious: No
  Sender: FDA-Public Use
  Company Number: US-PFIZER INC-2011167389

PATIENT
  Sex: Female

DRUGS (6)
  1. PROCARDIA [Suspect]
     Indication: HYPERTENSION
     Dosage: 100 MG, UNK
  2. ACETYLSALICYLIC ACID [Concomitant]
     Indication: CARDIAC DISORDER
     Dosage: 81 MG, DAILY
  3. PROCARDIA [Suspect]
     Indication: MYOCARDIAL INFARCTION
     Dosage: 10 MG, 3X/DAY
     Route: 048
     Dates: start: 20110718
  4. CRESTOR [Concomitant]
     Indication: BLOOD CHOLESTEROL INCREASED
     Dosage: 2.5 MG, DAILY
     Route: 048
  5. PROCARDIA XL [Concomitant]
     Indication: HYPERTENSION
     Dosage: 30 MG, DAILY
     Route: 048
     Dates: start: 20090201
  6. ISOSORBIDE MONONITRATE [Concomitant]
     Indication: ANGINA PECTORIS
     Dosage: 30 MG, DAILY

REACTIONS (8)
  - MYALGIA [None]
  - FEELING ABNORMAL [None]
  - FEELING HOT [None]
  - FATIGUE [None]
  - BLOOD PRESSURE DECREASED [None]
  - BURNING SENSATION [None]
  - LIMB DISCOMFORT [None]
  - DIZZINESS [None]
